FAERS Safety Report 11139907 (Version 1)
Quarter: 2015Q2

REPORT INFORMATION
  Report Type: Spontaneous
  Country: US (occurrence: US)
  Receive Date: 20150527
  Receipt Date: 20150527
  Transmission Date: 20150821
  Serious: No
  Sender: FDA-Public Use
  Company Number: US-PFIZER INC-2015175031

PATIENT
  Age: 77 Year
  Sex: Female
  Weight: 64 kg

DRUGS (1)
  1. LYRICA [Suspect]
     Active Substance: PREGABALIN
     Indication: HERPES ZOSTER
     Dosage: 100 MG, 2X/DAY (100 MG IN THE MORNING AND NIGHT)
     Route: 048

REACTIONS (3)
  - Condition aggravated [Unknown]
  - Insomnia [Unknown]
  - Gastrooesophageal reflux disease [Unknown]
